FAERS Safety Report 24392632 (Version 1)
Quarter: 2024Q4

REPORT INFORMATION
  Report Type: Spontaneous
  Country: US (occurrence: US)
  Receive Date: 20241003
  Receipt Date: 20241003
  Transmission Date: 20250114
  Serious: No
  Sender: UROGEN PHARMA
  Company Number: US-UROGEN PHARMA LTD.-2024-UGN-000113

PATIENT

DRUGS (3)
  1. JELMYTO [Suspect]
     Active Substance: MITOMYCIN
     Indication: Transitional cell cancer of the renal pelvis and ureter
     Dosage: INSTILLATION VIA CATHETER (RETROGRADE, ONCE A WEEK
     Dates: start: 20240719, end: 20240719
  2. JELMYTO [Suspect]
     Active Substance: MITOMYCIN
     Dosage: INSTILLATION VIA CATHETER (RETROGRADE, ONCE A WEEK
     Dates: start: 20240726, end: 20240726
  3. JELMYTO [Suspect]
     Active Substance: MITOMYCIN
     Dosage: INSTILLATION VIA CATHETER (RETROGRADE, ONCE A WEEK
     Dates: start: 20240802, end: 20240802

REACTIONS (2)
  - Asthenia [Unknown]
  - Haematuria [Unknown]
